FAERS Safety Report 8444893-X (Version None)
Quarter: 2012Q2

REPORT INFORMATION
  Report Type: 
  Country: None (occurrence: None)
  Receive Date: 20120618
  Receipt Date: 20120611
  Transmission Date: 20120825
  Serious: Yes (Hospitalization)
  Sender: FDA-Public Use
  Company Number: US-CELGENEUS-163-21880-12061689

PATIENT
  Sex: Male
  Weight: 120.5 kg

DRUGS (10)
  1. VELCADE [Suspect]
     Indication: MULTIPLE MYELOMA
     Route: 065
     Dates: start: 20120423, end: 20120518
  2. ACYCLOVIR [Concomitant]
     Route: 065
     Dates: start: 20120423
  3. BACTRIM [Concomitant]
     Route: 065
     Dates: start: 20120514
  4. PROTONIX [Concomitant]
     Route: 065
  5. DEXAMETHASONE [Suspect]
     Indication: MULTIPLE MYELOMA
     Dosage: 20 MILLIGRAM
     Route: 048
     Dates: start: 20120423, end: 20120518
  6. LIPITOR [Concomitant]
     Route: 065
  7. FLOMAX [Concomitant]
     Route: 065
     Dates: start: 20100708
  8. REVLIMID [Suspect]
     Indication: MULTIPLE MYELOMA
     Route: 048
     Dates: start: 20120423, end: 20120518
  9. LOVENOX [Concomitant]
     Route: 065
     Dates: start: 20120525
  10. SILDENAFIL [Concomitant]
     Route: 065
     Dates: start: 20100708

REACTIONS (1)
  - ATRIAL FLUTTER [None]
